FAERS Safety Report 18249268 (Version 3)
Quarter: 2020Q4

REPORT INFORMATION
  Report Type: Report from Study
  Country: None (occurrence: US)
  Receive Date: 20200909
  Receipt Date: 20201209
  Transmission Date: 20210113
  Serious: Yes (Hospitalization)
  Sender: FDA-Public Use
  Company Number: US-ABBVIE-20K-163-3558128-00

PATIENT
  Age: 79 Year
  Sex: Male

DRUGS (2)
  1. IMBRUVICA [Suspect]
     Active Substance: IBRUTINIB
     Indication: CHRONIC LYMPHOCYTIC LEUKAEMIA
     Route: 048
  2. IMBRUVICA [Suspect]
     Active Substance: IBRUTINIB
     Route: 048
     Dates: start: 20200825

REACTIONS (8)
  - Dysphagia [Not Recovered/Not Resolved]
  - Eyelid ptosis [Recovering/Resolving]
  - Atrial fibrillation [Recovering/Resolving]
  - Emotional disorder [Unknown]
  - Dry skin [Unknown]
  - Fatigue [Recovering/Resolving]
  - Rash [Recovered/Resolved]
  - Weight increased [Recovering/Resolving]

NARRATIVE: CASE EVENT DATE: 2020
